FAERS Safety Report 12817989 (Version 1)
Quarter: 2016Q4

REPORT INFORMATION
  Report Type: Spontaneous
  Country: FI (occurrence: FI)
  Receive Date: 20161006
  Receipt Date: 20161006
  Transmission Date: 20170207
  Serious: Yes (Disabling, Other)
  Sender: FDA-Public Use
  Company Number: FI-ROCHE-1837176

PATIENT
  Sex: Female

DRUGS (1)
  1. MABTHERA [Suspect]
     Active Substance: RITUXIMAB
     Indication: LYMPHOMA
     Route: 065
     Dates: end: 2016

REACTIONS (3)
  - Epilepsy [Unknown]
  - Peripheral paralysis [Unknown]
  - Central nervous system infection [Unknown]

NARRATIVE: CASE EVENT DATE: 2016
